FAERS Safety Report 7303621-1 (Version None)
Quarter: 2011Q1

REPORT INFORMATION
  Report Type: 
  Country: None (occurrence: None)
  Receive Date: 20110221
  Receipt Date: 20110214
  Transmission Date: 20110831
  Serious: Yes (Hospitalization)
  Sender: FDA-Public Use
  Company Number: GB-AMGEN-GBRSP2011008363

PATIENT
  Age: 76 Year
  Sex: Female
  Weight: 54.95 kg

DRUGS (10)
  1. FUROSEMIDE [Concomitant]
     Dosage: 20 MG, UNK
  2. TPN [Concomitant]
  3. SPIRONOLACTONE [Concomitant]
     Dosage: 25 MG, UNK
     Route: 048
  4. TELMISARTAN [Concomitant]
     Dosage: 20 MG, UNK
     Route: 048
  5. BISOPROLOL [Concomitant]
     Dosage: 2.5 MG, UNK
     Route: 048
  6. OMEPRAZOLE [Concomitant]
     Dosage: 20 MG, UNK
     Route: 048
  7. PROLIA [Suspect]
     Indication: OSTEOPOROSIS
     Dosage: 60 MG, Q6MO
  8. AMITRIPTYLINE [Concomitant]
     Dosage: 25 MG, UNK
  9. DIAZEPAM [Concomitant]
     Dosage: 2 MG, UNK
  10. ADCAL D3 [Concomitant]

REACTIONS (1)
  - DIARRHOEA [None]
